FAERS Safety Report 10530642 (Version 8)
Quarter: 2016Q3

REPORT INFORMATION
  Report Type: Report from Study
  Country: US (occurrence: US)
  Receive Date: 20141021
  Receipt Date: 20160831
  Transmission Date: 20161109
  Serious: Yes (Other)
  Sender: FDA-Public Use
  Company Number: US-UCBSA-2014015140

PATIENT
  Age: 43 Year
  Sex: Female
  Weight: 58.5 kg

DRUGS (3)
  1. CERTOLIZUMAB PEGOL [Suspect]
     Active Substance: CERTOLIZUMAB PEGOL
     Dosage: 200 MG, EV 2 WEEKS(QOW) NDC NUMBER:50474-700-62
     Dates: start: 20160823
  2. DUREZOL [Concomitant]
     Active Substance: DIFLUPREDNATE
     Indication: EYE INFECTION
     Dosage: UNK
  3. CERTOLIZUMAB PEGOL [Suspect]
     Active Substance: CERTOLIZUMAB PEGOL
     Indication: CROHN^S DISEASE
     Dosage: 400 MG, EV 4 WEEKS; EXPIRY DATE: APR-2016, APR-2018, NDC NO. 50474-710-79
     Dates: start: 20130531

REACTIONS (4)
  - Sinusitis [Recovered/Resolved]
  - Off label use [Unknown]
  - Eye infection [Not Recovered/Not Resolved]
  - Bronchitis [Recovered/Resolved]

NARRATIVE: CASE EVENT DATE: 20141013
